FAERS Safety Report 12109756 (Version 1)
Quarter: 2016Q1

REPORT INFORMATION
  Report Type: Spontaneous
  Country: US (occurrence: US)
  Receive Date: 20160224
  Receipt Date: 20160224
  Transmission Date: 20160526
  Serious: No
  Sender: FDA-Public Use
  Company Number: US-GLAXOSMITHKLINE-US2016024863

PATIENT
  Sex: Female

DRUGS (3)
  1. PEPPERMINT OIL [Suspect]
     Active Substance: PEPPERMINT OIL
     Indication: PARANASAL SINUS DISCOMFORT
     Dosage: UNK
  2. FLONASE [Suspect]
     Active Substance: FLUTICASONE PROPIONATE
     Indication: PARANASAL SINUS DISCOMFORT
     Dosage: UNK
  3. SUDAFED [Suspect]
     Active Substance: PSEUDOEPHEDRINE HYDROCHLORIDE
     Indication: PARANASAL SINUS DISCOMFORT
     Dosage: UNK

REACTIONS (1)
  - Product use issue [Unknown]
